FAERS Safety Report 20201914 (Version 3)
Quarter: 2024Q4

REPORT INFORMATION
  Report Type: Report from Study
  Country: CA (occurrence: CA)
  Receive Date: 20211217
  Receipt Date: 20241017
  Transmission Date: 20250115
  Serious: No
  Sender: ROCHE
  Company Number: CA-ROCHE-2980898

PATIENT
  Age: 27 Year
  Sex: Male

DRUGS (2)
  1. OCREVUS [Suspect]
     Active Substance: OCRELIZUMAB
     Indication: Relapsing-remitting multiple sclerosis
     Dosage: MORE DOSAGE INFORMATION IS 300 MG AT DAY 0 AND 14, THEN 600 MG EVERY 6 MONTH? FREQUENCY TEXT:DAY 0,
     Route: 042
     Dates: start: 20190904
  2. CLARITIN [Concomitant]
     Active Substance: LORATADINE

REACTIONS (1)
  - SARS-CoV-2 test positive [Not Recovered/Not Resolved]
